FAERS Safety Report 21786410 (Version 1)
Quarter: 2022Q4

REPORT INFORMATION
  Report Type: Spontaneous
  Country: US (occurrence: US)
  Receive Date: 20221228
  Receipt Date: 20221228
  Transmission Date: 20230112
  Serious: No
  Sender: FDA-Public Use
  Company Number: US-ELI_LILLY_AND_COMPANY-US202212010960

PATIENT

DRUGS (1)
  1. TRULICITY [Suspect]
     Active Substance: DULAGLUTIDE
     Indication: Product used for unknown indication
     Dosage: 0.75 MG, UNKNOWN
     Route: 065

REACTIONS (6)
  - Musculoskeletal chest pain [Unknown]
  - Pruritus [Unknown]
  - Hypoaesthesia [Unknown]
  - Back pain [Unknown]
  - Swelling [Unknown]
  - Abdominal pain [Unknown]
